FAERS Safety Report 10215378 (Version 1)
Quarter: 2014Q2

REPORT INFORMATION
  Report Type: Spontaneous
  Country: CN (occurrence: CN)
  Receive Date: 20140604
  Receipt Date: 20140604
  Transmission Date: 20141212
  Serious: Yes (Other)
  Sender: FDA-Public Use
  Company Number: CN-ABBVIE-14P-035-1243958-00

PATIENT
  Age: 40 Year
  Sex: Female

DRUGS (1)
  1. ENANTONE [Suspect]
     Indication: ENDOMETRIOSIS
     Route: 058
     Dates: start: 20121130, end: 20121231

REACTIONS (1)
  - Vaginal haemorrhage [Recovered/Resolved]
